FAERS Safety Report 5141097-3 (Version None)
Quarter: 2006Q4

REPORT INFORMATION
  Report Type: 
  Country: None (occurrence: None)
  Receive Date: 20061101
  Receipt Date: 20061025
  Transmission Date: 20070319
  Serious: Yes (Life-Threatening, Hospitalization, Disabling, Other)
  Sender: FDA-Public Use
  Company Number: GB-ELI_LILLY_AND_COMPANY-GB200610004586

PATIENT
  Age: 53 Year
  Sex: Male

DRUGS (7)
  1. ZYPREXA [Suspect]
     Dosage: 10 MG, DAILY (1/D)
     Route: 048
     Dates: start: 20060423, end: 20060716
  2. DEPAKOTE [Concomitant]
     Dosage: 500 MG, 2/D
     Route: 048
     Dates: start: 20030901, end: 20060722
  3. VALSARTAN [Concomitant]
     Dosage: 160 MG, DAILY (1/D)
     Route: 048
     Dates: start: 20060301
  4. MAXEPA /USA/ [Concomitant]
     Dosage: 5 D/F, 2/D
     Route: 048
     Dates: start: 20060401, end: 20060719
  5. FLUTICASONE PROPIONATE W/SALMETEROL XINAFOATE [Concomitant]
     Route: 055
     Dates: end: 20060720
  6. SOLIAN                                  /FRA/ [Concomitant]
     Dosage: 400 MG, 2/D
     Route: 048
     Dates: start: 20020501, end: 20060722
  7. TIOTROPIUM BROMIDE [Concomitant]
     Dosage: 18 UG, DAILY (1/D)
     Route: 055
     Dates: end: 20060720

REACTIONS (4)
  - ELECTROCARDIOGRAM QT PROLONGED [None]
  - HYPOXIC ENCEPHALOPATHY [None]
  - NONSPECIFIC REACTION [None]
  - VENTRICULAR FIBRILLATION [None]
